FAERS Safety Report 24313216 (Version 1)
Quarter: 2024Q3

REPORT INFORMATION
  Report Type: Spontaneous
  Country: GB (occurrence: GB)
  Receive Date: 20240912
  Receipt Date: 20240912
  Transmission Date: 20241017
  Serious: Yes (Other)
  Sender: BAUSCH AND LOMB
  Company Number: None

PATIENT
  Age: 44 Year
  Sex: Male
  Weight: 89 kg

DRUGS (5)
  1. PLENVU [Suspect]
     Active Substance: ASCORBIC ACID\POLYETHYLENE GLYCOL 3350\POTASSIUM CHLORIDE\SODIUM ASCORBATE\SODIUM CHLORIDE\SODIUM SU
     Indication: Colonoscopy
     Dosage: 2 SIPS
     Route: 048
     Dates: start: 20240904, end: 20240904
  2. BUDESONIDE [Concomitant]
     Active Substance: BUDESONIDE
     Indication: Crohn^s disease
     Dosage: UNK
     Dates: start: 20240823
  3. OMEPRAZOLE [Concomitant]
     Active Substance: OMEPRAZOLE
     Indication: Crohn^s disease
     Dosage: UNK
     Dates: start: 20240823
  4. ONDANSETRON [Concomitant]
     Active Substance: ONDANSETRON
     Indication: Crohn^s disease
     Dosage: UNK
     Dates: start: 20240823
  5. NYSTATIN [Concomitant]
     Active Substance: NYSTATIN
     Indication: Oral candidiasis
     Dosage: UNK
     Dates: start: 20240903

REACTIONS (7)
  - Cold sweat [Recovered/Resolved]
  - Gastrooesophageal reflux disease [Recovered/Resolved]
  - Salivary hypersecretion [Recovered/Resolved]
  - Dysgeusia [Recovered/Resolved]
  - Palpitations [Recovering/Resolving]
  - Nausea [Recovering/Resolving]
  - Retching [Unknown]

NARRATIVE: CASE EVENT DATE: 20240904
